FAERS Safety Report 6939434-X (Version None)
Quarter: 2010Q3

REPORT INFORMATION
  Report Type: 
  Country: None (occurrence: None)
  Receive Date: 20100819
  Receipt Date: 20100809
  Transmission Date: 20110219
  Serious: Yes (Other)
  Sender: FDA-Public Use
  Company Number: AUR-APL-2010-02010

PATIENT
  Sex: Male

DRUGS (2)
  1. AMOXICILLIN [Suspect]
     Indication: TRACHEITIS
     Dosage: 4ML, Q8H, ORAL
     Route: 048
     Dates: start: 20100706, end: 20100710
  2. CARBOCISTINE [Concomitant]

REACTIONS (3)
  - CRYING [None]
  - RESTLESSNESS [None]
  - SELF INJURIOUS BEHAVIOUR [None]
